FAERS Safety Report 7968731-4 (Version None)
Quarter: 2011Q4

REPORT INFORMATION
  Report Type: 
  Country: None (occurrence: None)
  Receive Date: 20111208
  Receipt Date: 20111124
  Transmission Date: 20120403
  Serious: Yes (Other)
  Sender: FDA-Public Use
  Company Number: GER/UKI/11/0022088

PATIENT
  Age: 38 Year
  Sex: Female

DRUGS (12)
  1. LAMOTRIGINE [Suspect]
     Indication: PRODUCT USED FOR UNKNOWN INDICATION
  2. FOLIC ACID [Concomitant]
  3. FLUOXETINE HYDROCHLORIDE [Suspect]
     Indication: PRODUCT USED FOR UNKNOWN INDICATION
     Dosage: 20 MG, 1 IN 1 D
     Dates: start: 20101018, end: 20110831
  4. KEPPRA [Concomitant]
  5. TOPAMAX [Suspect]
     Indication: EPILEPSY
     Dosage: SEE IAMGE
     Route: 048
     Dates: start: 20110830, end: 20110830
  6. TOPAMAX [Suspect]
     Indication: EPILEPSY
     Dosage: SEE IAMGE
     Route: 048
     Dates: start: 20070703
  7. TOPAMAX [Suspect]
     Indication: EPILEPSY
     Dosage: SEE IAMGE
     Route: 048
     Dates: start: 20091130, end: 20100623
  8. TOPAMAX [Suspect]
     Indication: EPILEPSY
     Dosage: SEE IAMGE
     Route: 048
     Dates: start: 20100915, end: 20100915
  9. TOPAMAX [Suspect]
     Indication: EPILEPSY
     Dosage: SEE IAMGE
     Route: 048
     Dates: start: 20101025
  10. ANTIDEPRESSANTS NOS (ANTIDEPRESSANTS) [Concomitant]
  11. CLONAZEPAM [Concomitant]
  12. VALPROATE SODIUM [Suspect]
     Indication: PRODUCT USED FOR UNKNOWN INDICATION

REACTIONS (14)
  - MOOD SWINGS [None]
  - SOMNOLENCE [None]
  - PARAESTHESIA [None]
  - GINGIVAL BLEEDING [None]
  - PALPITATIONS [None]
  - POST PROCEDURAL COMPLICATION [None]
  - DIARRHOEA [None]
  - FEELING ABNORMAL [None]
  - DEPRESSION [None]
  - IRRITABLE BOWEL SYNDROME [None]
  - ABDOMINAL PAIN UPPER [None]
  - TOOTH LOSS [None]
  - WEIGHT DECREASED [None]
  - HALLUCINATION [None]
